FAERS Safety Report 19252754 (Version 1)
Quarter: 2021Q2

REPORT INFORMATION
  Report Type: Spontaneous
  Country: CH (occurrence: CH)
  Receive Date: 20210512
  Receipt Date: 20210512
  Transmission Date: 20210717
  Serious: Yes (Hospitalization)
  Sender: FDA-Public Use
  Company Number: CH-CANTON LABORATORIES, LLC-2110508

PATIENT
  Sex: Male

DRUGS (21)
  1. PREDNISONE. [Concomitant]
     Active Substance: PREDNISONE
     Route: 048
     Dates: start: 20210329, end: 20210401
  2. TRAMADOL. [Concomitant]
     Active Substance: TRAMADOL
     Route: 048
     Dates: start: 20210326, end: 20210401
  3. TAVEGYL [Concomitant]
     Active Substance: CLEMASTINE FUMARATE
     Route: 042
     Dates: start: 20210321, end: 20210326
  4. IRFEN [Concomitant]
     Active Substance: IBUPROFEN
     Route: 065
     Dates: start: 20210321, end: 20210326
  5. ATORVASTATINE [Concomitant]
     Active Substance: ATORVASTATIN
     Route: 048
  6. RAMIPRIL. [Concomitant]
     Active Substance: RAMIPRIL
     Route: 048
  7. VI?DE 3 [Concomitant]
     Active Substance: CHOLECALCIFEROL
     Route: 048
     Dates: start: 20210324, end: 20210324
  8. NAPROSYN [Suspect]
     Active Substance: NAPROXEN
     Indication: PRODUCT USED FOR UNKNOWN INDICATION
     Route: 048
     Dates: start: 20190101, end: 20210321
  9. CLEXANE [Concomitant]
     Active Substance: ENOXAPARIN SODIUM
     Route: 058
  10. PREDNISONE. [Concomitant]
     Active Substance: PREDNISONE
     Route: 048
     Dates: start: 20210321, end: 20210324
  11. ATARAX [Concomitant]
     Active Substance: HYDROXYZINE HYDROCHLORIDE
     Route: 048
     Dates: start: 20210328, end: 20210401
  12. CALCIMAGON [Concomitant]
     Active Substance: CALCIUM
     Route: 048
     Dates: start: 20210401
  13. EXCIPIAL [Concomitant]
     Route: 003
     Dates: start: 20210329, end: 20210401
  14. SICORTEN PLUS [Concomitant]
     Route: 003
     Dates: start: 20210321, end: 20210322
  15. LISINOPRIL. [Suspect]
     Active Substance: LISINOPRIL
     Route: 048
  16. CLOPIDOGREL [Suspect]
     Active Substance: CLOPIDOGREL BISULFATE
     Route: 048
  17. DAFALGAN [Concomitant]
     Active Substance: ACETAMINOPHEN
     Route: 048
     Dates: start: 20210326, end: 20210401
  18. TOREM [Suspect]
     Active Substance: TORSEMIDE
     Route: 048
     Dates: start: 20170106
  19. CETALLERG [Concomitant]
     Active Substance: CETIRIZINE HYDROCHLORIDE
     Route: 048
     Dates: start: 20210326, end: 20210401
  20. M?TOPROLOL [Concomitant]
     Route: 048
  21. DERMOVATE [Concomitant]
     Active Substance: CLOBETASOL
     Route: 003
     Dates: start: 20210322, end: 20210401

REACTIONS (1)
  - Pemphigoid [Recovering/Resolving]

NARRATIVE: CASE EVENT DATE: 20210228
